FAERS Safety Report 19186504 (Version 2)
Quarter: 2021Q2

REPORT INFORMATION
  Report Type: Other
  Country: GB (occurrence: GB)
  Receive Date: 20210428
  Receipt Date: 20210429
  Transmission Date: 20210717
  Serious: Yes (Other)
  Sender: FDA-Public Use
  Company Number: GB-CELLTRION INC.-2021GB005588

PATIENT

DRUGS (3)
  1. INFLIXIMAB (UNKNOWN) [Suspect]
     Active Substance: INFLIXIMAB
     Indication: ILL-DEFINED DISORDER
     Dosage: UNKNOWN
  2. STELARA [Concomitant]
     Active Substance: USTEKINUMAB
     Indication: CROHN^S DISEASE
  3. STELARA [Concomitant]
     Active Substance: USTEKINUMAB
     Indication: ILL-DEFINED DISORDER
     Dosage: UNK

REACTIONS (2)
  - Off label use [Unknown]
  - Systemic lupus erythematosus [Unknown]
